FAERS Safety Report 26024709 (Version 2)
Quarter: 2025Q4

REPORT INFORMATION
  Report Type: Report from Study
  Country: CA (occurrence: CA)
  Receive Date: 20251111
  Receipt Date: 20251208
  Transmission Date: 20260117
  Serious: Yes (Hospitalization)
  Sender: ROCHE
  Company Number: CA-ROCHE-2388751

PATIENT
  Age: 60 Year
  Sex: Male
  Weight: 55.7 kg

DRUGS (26)
  1. RITUXAN [Suspect]
     Active Substance: RITUXIMAB
     Indication: Autoantibody positive
     Dosage: MOST RECENT DOSE OF RITUXIMAB ON 10/MAY/2019, 10/JUL/2019,
     Route: 042
     Dates: start: 201903, end: 201907
  2. RITUXAN [Suspect]
     Active Substance: RITUXIMAB
     Indication: Gamma interferon therapy
     Route: 042
     Dates: start: 201903, end: 20190510
  3. RITUXAN [Suspect]
     Active Substance: RITUXIMAB
     Dosage: FIRST PROGRAM INFUSION?ON 22/AUG/2019, HE RECEIVED MOST RECENT DOSE OF RITUXIMAB.
     Route: 042
     Dates: start: 20190710
  4. RITUXAN [Suspect]
     Active Substance: RITUXIMAB
     Route: 042
  5. RITUXAN [Suspect]
     Active Substance: RITUXIMAB
     Route: 042
  6. RITUXAN [Suspect]
     Active Substance: RITUXIMAB
     Route: 042
  7. RITUXAN [Suspect]
     Active Substance: RITUXIMAB
     Route: 042
  8. RITUXAN [Suspect]
     Active Substance: RITUXIMAB
     Route: 042
  9. RITUXAN [Suspect]
     Active Substance: RITUXIMAB
     Route: 042
  10. RITUXAN [Suspect]
     Active Substance: RITUXIMAB
     Route: 042
  11. RITUXAN [Suspect]
     Active Substance: RITUXIMAB
     Route: 042
  12. RITUXAN [Suspect]
     Active Substance: RITUXIMAB
     Route: 042
  13. RITUXAN [Suspect]
     Active Substance: RITUXIMAB
     Route: 042
  14. RITUXAN [Suspect]
     Active Substance: RITUXIMAB
     Route: 042
     Dates: start: 20250312
  15. RITUXAN [Suspect]
     Active Substance: RITUXIMAB
     Route: 042
  16. BENADRYL [Concomitant]
     Active Substance: DIPHENHYDRAMINE HYDROCHLORIDE
     Indication: Product used for unknown indication
     Route: 048
     Dates: start: 20190710
  17. CLARITHROMYCIN [Concomitant]
     Active Substance: CLARITHROMYCIN
     Indication: Product used for unknown indication
  18. LEVOTHYROXINE [Concomitant]
     Active Substance: LEVOTHYROXINE
     Indication: Product used for unknown indication
  19. LINEZOLID [Concomitant]
     Active Substance: LINEZOLID
     Indication: Product used for unknown indication
  20. POTASSIUM [Concomitant]
     Active Substance: POTASSIUM
     Indication: Product used for unknown indication
  21. SOLU-MEDROL [Concomitant]
     Active Substance: METHYLPREDNISOLONE SODIUM SUCCINATE
     Indication: Product used for unknown indication
     Route: 042
     Dates: start: 20190710
  22. TYLENOL [Concomitant]
     Active Substance: ACETAMINOPHEN
     Route: 048
     Dates: start: 20190710
  23. LYRICA [Concomitant]
     Active Substance: PREGABALIN
     Indication: Neuropathy peripheral
  24. RUPATADINE [Concomitant]
     Active Substance: RUPATADINE
     Indication: Product used for unknown indication
     Route: 048
  25. DULOXETINE [Concomitant]
     Active Substance: DULOXETINE
     Indication: Product used for unknown indication
  26. MIRTAZAPINE [Concomitant]
     Active Substance: MIRTAZAPINE
     Indication: Product used for unknown indication

REACTIONS (15)
  - Off label use [Unknown]
  - Blood pressure diastolic decreased [Unknown]
  - Heart rate decreased [Unknown]
  - Oxygen saturation decreased [Unknown]
  - Blood pressure diastolic abnormal [Unknown]
  - Blood pressure systolic abnormal [Unknown]
  - Blood pressure fluctuation [Unknown]
  - Heart rate increased [Unknown]
  - Blood pressure increased [Unknown]
  - Weight decreased [Unknown]
  - Depression [Unknown]
  - Decreased appetite [Unknown]
  - Nausea [Unknown]
  - Gastric infection [Recovered/Resolved]
  - Liver function test increased [Unknown]

NARRATIVE: CASE EVENT DATE: 20190918
